FAERS Safety Report 18833669 (Version 3)
Quarter: 2021Q1

REPORT INFORMATION
  Report Type: Other
  Country: GB (occurrence: GB)
  Receive Date: 20210203
  Receipt Date: 20210215
  Transmission Date: 20210419
  Serious: Yes (Other)
  Sender: FDA-Public Use
  Company Number: GB-STRIDES ARCOLAB LIMITED-2021SP001339

PATIENT
  Sex: Female

DRUGS (9)
  1. COLECALCIFEROL [Suspect]
     Active Substance: CHOLECALCIFEROL
     Indication: PRODUCT USED FOR UNKNOWN INDICATION
     Dosage: UNK, CAPSULE
     Route: 065
  2. COLECALCIFEROL [Suspect]
     Active Substance: CHOLECALCIFEROL
     Dosage: 800 UNIT, UNKNOWN (CAPSULE)
     Route: 065
  3. DOXAZOSIN [Suspect]
     Active Substance: DOXAZOSIN MESYLATE
     Indication: PRODUCT USED FOR UNKNOWN INDICATION
     Dosage: 10 MILLIGRAM
     Route: 065
  4. LIDOCAINE. [Suspect]
     Active Substance: LIDOCAINE
     Indication: OSTEOPOROSIS
     Dosage: PATCHES 12 HOURS AT NIGHT
     Route: 065
  5. LEVOTHYROXINE. [Suspect]
     Active Substance: LEVOTHYROXINE
     Indication: PRODUCT USED FOR UNKNOWN INDICATION
     Dosage: 1 DOSAGE FORM, TABLET, UNKNOWN
     Route: 065
  6. RAMIPRIL. [Suspect]
     Active Substance: RAMIPRIL
     Indication: OSTEOPOROSIS
     Dosage: UNK, TABLET
     Route: 065
  7. COLECALCIFEROL [Suspect]
     Active Substance: CHOLECALCIFEROL
     Dosage: UNK, CAPSULE
     Route: 065
  8. DOXAZOSIN [Suspect]
     Active Substance: DOXAZOSIN MESYLATE
     Dosage: 10 MICROGRAM, (PATIENT HAD TAKE 10MCG OF THOSE A DAY) TABLET
     Route: 065
  9. ERGOCALCIFEROL. [Suspect]
     Active Substance: ERGOCALCIFEROL
     Indication: PRODUCT USED FOR UNKNOWN INDICATION
     Dosage: UNK
     Route: 065

REACTIONS (8)
  - Pulmonary fibrosis [Unknown]
  - Pain [Unknown]
  - Spinal fracture [Unknown]
  - Deafness [Unknown]
  - Muscular weakness [Unknown]
  - Eye infarction [Unknown]
  - Diplopia [Unknown]
  - Swelling face [Unknown]

NARRATIVE: CASE EVENT DATE: 201906
